FAERS Safety Report 4537560-6 (Version None)
Quarter: 2004Q4

REPORT INFORMATION
  Report Type: 
  Country: None (occurrence: None)
  Receive Date: 20041221
  Receipt Date: 20040824
  Transmission Date: 20050328
  Serious: No
  Sender: FDA-Public Use
  Company Number: A-US2004-07198

PATIENT
  Age: 52 Year
  Sex: Male

DRUGS (9)
  1. TRACLEER [Suspect]
     Indication: PULMONARY HYPERTENSION
     Dosage: ORAL
     Route: 048
     Dates: start: 20031001
  2. LISINOPRIL [Concomitant]
  3. LASIX [Concomitant]
  4. ESTENOLOL [Concomitant]
  5. CELEXA [Concomitant]
  6. ACETYLSALICYLIC ACID BABY (ACETYLSALICYLIC ACID) [Concomitant]
  7. VITAMIN C (ASCORBIC ACID) [Concomitant]
  8. SINGULAIR [Concomitant]
  9. ZYRTEC [Concomitant]

REACTIONS (7)
  - BACK PAIN [None]
  - DIZZINESS [None]
  - EAR INFECTION [None]
  - HEART RATE DECREASED [None]
  - MUSCULOSKELETAL STIFFNESS [None]
  - NAUSEA [None]
  - NECK PAIN [None]
